FAERS Safety Report 5712067-9 (Version None)
Quarter: 2008Q2

REPORT INFORMATION
  Report Type: 
  Country: None (occurrence: None)
  Receive Date: 20080418
  Receipt Date: 20080409
  Transmission Date: 20081010
  Serious: Yes (Hospitalization)
  Sender: FDA-Public Use
  Company Number: GXKR2008US03474

PATIENT
  Age: 78 Year
  Sex: Female
  Weight: 85 kg

DRUGS (10)
  1. METRONIDAZOLE [Suspect]
     Indication: UPPER RESPIRATORY TRACT INFECTION
     Dosage: 250 MG, Q8H
  2. WARFARIN SODIUM [Suspect]
     Indication: CEREBROVASCULAR ACCIDENT
     Dosage: 7 MG/DAY
  3. LEVOTHYROXINE SODIUM [Concomitant]
  4. CITALOPRAM HYDROBROMIDE [Concomitant]
  5. METOPROLOL TARTRATE [Concomitant]
  6. CLONIDINE (CLONIDINE) PATCH [Concomitant]
  7. TEGASEROD (TEGASEROD) [Concomitant]
  8. POTASSIUM CHLORIDE [Concomitant]
  9. MONTELUKAST SODIUM [Concomitant]
  10. LEVOFLOXACIN [Concomitant]

REACTIONS (7)
  - CEREBRAL HAEMORRHAGE [None]
  - DRUG INTERACTION [None]
  - EPISTAXIS [None]
  - FACIAL BONES FRACTURE [None]
  - GAIT DISTURBANCE [None]
  - INTERNATIONAL NORMALISED RATIO INCREASED [None]
  - UPPER RESPIRATORY TRACT INFECTION [None]
